FAERS Safety Report 8425873-7 (Version None)
Quarter: 2012Q2

REPORT INFORMATION
  Report Type: 
  Country: None (occurrence: None)
  Receive Date: 20120611
  Receipt Date: 20120531
  Transmission Date: 20120825
  Serious: Yes (Other)
  Sender: FDA-Public Use
  Company Number: US-US-EMD SERONO, INC.-7137393

PATIENT
  Sex: Female

DRUGS (2)
  1. REBIF [Suspect]
     Indication: MULTIPLE SCLEROSIS
     Route: 058
     Dates: start: 20110103
  2. UNSPECIFIED MEDICATION [Concomitant]
     Indication: PREMEDICATION

REACTIONS (5)
  - INFLUENZA LIKE ILLNESS [None]
  - INJECTION SITE PAIN [None]
  - CARDIAC DISORDER [None]
  - INJECTION SITE HAEMATOMA [None]
  - FATIGUE [None]
